FAERS Safety Report 24637820 (Version 2)
Quarter: 2024Q4

REPORT INFORMATION
  Report Type: Report from Study
  Country: US (occurrence: US)
  Receive Date: 20241119
  Receipt Date: 20241210
  Transmission Date: 20250114
  Serious: Yes (Other)
  Sender: ASTELLAS
  Company Number: US-ASTELLAS-2024-AER-010648

PATIENT
  Age: 77 Year
  Sex: Male

DRUGS (2)
  1. ENZALUTAMIDE [Suspect]
     Active Substance: ENZALUTAMIDE
     Indication: Bone cancer
     Route: 048
     Dates: start: 202404, end: 202410
  2. ENZALUTAMIDE [Suspect]
     Active Substance: ENZALUTAMIDE
     Indication: Bone cancer
     Route: 048
     Dates: start: 20241101

REACTIONS (3)
  - Foreign body in throat [Unknown]
  - Product use complaint [Unknown]
  - Off label use [Unknown]

NARRATIVE: CASE EVENT DATE: 20240401
